FAERS Safety Report 4781396-8 (Version None)
Quarter: 2005Q3

REPORT INFORMATION
  Report Type: 
  Country: None (occurrence: None)
  Receive Date: 20050928
  Receipt Date: 20050922
  Transmission Date: 20060218
  Serious: Yes (Other)
  Sender: FDA-Public Use
  Company Number: DE-MERCK-0509DEU00145

PATIENT
  Age: 40 Year
  Sex: Male

DRUGS (4)
  1. CRIXIVAN [Suspect]
     Indication: HIV INFECTION
     Route: 048
     Dates: start: 19960101, end: 20050801
  2. CRIXIVAN [Suspect]
     Indication: PNEUMOCYSTIS JIROVECI PNEUMONIA
     Route: 048
     Dates: start: 19960101, end: 20050801
  3. LAMIVUDINE AND ZIDOVUDINE [Concomitant]
     Route: 048
  4. LEVOTHYROXINE SODIUM [Concomitant]
     Route: 048

REACTIONS (4)
  - BASEDOW'S DISEASE [None]
  - BONE DENSITY DECREASED [None]
  - NECROSIS [None]
  - OSTEONECROSIS [None]
